FAERS Safety Report 9809117 (Version 1)
Quarter: 2014Q1

REPORT INFORMATION
  Report Type: Spontaneous
  Country: BR (occurrence: BR)
  Receive Date: 20140110
  Receipt Date: 20140110
  Transmission Date: 20141002
  Serious: Yes (Other)
  Sender: FDA-Public Use
  Company Number: BR-ASTRAZENECA-2014SE00508

PATIENT
  Age: 810 Month
  Sex: Male
  Weight: 100 kg

DRUGS (6)
  1. ATACAND COMB [Suspect]
     Indication: HYPERTENSION
     Dosage: 16 + 5  MG DAILY
     Route: 048
     Dates: start: 20131228
  2. SELOZOK [Suspect]
     Indication: HYPERTENSION
     Route: 048
  3. MICARDIS [Concomitant]
     Indication: HYPERTENSION
     Dosage: DAILY
     Route: 048
     Dates: end: 20131227
  4. BENERVA [Concomitant]
     Indication: VITAMIN SUPPLEMENTATION
     Dosage: DAILY
     Route: 048
  5. UNKNOWN (COMPOUNDED MEDICATION) [Concomitant]
     Indication: DANDRUFF
     Dosage: DAILY
     Route: 048
     Dates: start: 201311
  6. BAMIFIX [Concomitant]
     Indication: SLEEP APNOEA SYNDROME
     Dosage: DAILY
     Route: 048
     Dates: start: 201309

REACTIONS (4)
  - Sleep apnoea syndrome [Recovered/Resolved]
  - Dandruff [Recovering/Resolving]
  - Blood pressure increased [Unknown]
  - Local swelling [Not Recovered/Not Resolved]
